FAERS Safety Report 5661066-4 (Version None)
Quarter: 2008Q1

REPORT INFORMATION
  Report Type: 
  Country: None (occurrence: None)
  Receive Date: 20080311
  Receipt Date: 20080228
  Transmission Date: 20080703
  Serious: Yes (Hospitalization)
  Sender: FDA-Public Use
  Company Number: US-PFIZER INC-2008018773

PATIENT
  Sex: Male

DRUGS (12)
  1. PREDNISONE TAB [Suspect]
     Indication: RHEUMATOID ARTHRITIS
     Route: 048
  2. ETANERCEPT [Suspect]
     Indication: RHEUMATOID ARTHRITIS
     Route: 058
  3. HYDROXYCHLOROQUINE SULFATE [Suspect]
     Indication: RHEUMATOID ARTHRITIS
     Route: 048
  4. CEVIMELINE HYDROCHLORIDE [Concomitant]
  5. FLUTICASONE PROPIONATE [Concomitant]
     Route: 045
  6. DICLOFENAC SODIUM [Concomitant]
     Route: 048
  7. TOPROL-XL [Concomitant]
     Route: 048
  8. OMEPRAZOLE [Concomitant]
  9. FEXOFENADINE HYDROCHLORIDE [Concomitant]
     Route: 048
  10. HYDROCHLOROTHIAZIDE [Concomitant]
     Route: 048
  11. LISINOPRIL [Concomitant]
     Route: 048
  12. LOSARTAN POTASSIUM [Concomitant]
     Route: 048

REACTIONS (3)
  - PLEURAL EFFUSION [None]
  - PNEUMONIA [None]
  - PRESYNCOPE [None]
